FAERS Safety Report 10213635 (Version 1)
Quarter: 2014Q2

REPORT INFORMATION
  Report Type: Spontaneous
  Country: US (occurrence: None)
  Receive Date: 20140602
  Receipt Date: 20140602
  Transmission Date: 20141212
  Serious: Yes (Hospitalization)
  Sender: FDA-Public Use
  Company Number: None

PATIENT
  Age: 55 Year
  Sex: Female
  Weight: 66.68 kg

DRUGS (1)
  1. DULOXETINE [Suspect]
     Indication: DEPRESSION
     Dosage: 1 TABLETS ONCE DAILY TAKEN BY MOUTH
     Route: 048
     Dates: start: 20140410, end: 20140504

REACTIONS (5)
  - Chest discomfort [None]
  - Chest discomfort [None]
  - Headache [None]
  - Dysarthria [None]
  - Blood pressure increased [None]
